FAERS Safety Report 11301637 (Version 2)
Quarter: 2015Q3

REPORT INFORMATION
  Report Type: Spontaneous
  Country: US (occurrence: US)
  Receive Date: 20150722
  Receipt Date: 20150821
  Transmission Date: 20151125
  Serious: No
  Sender: FDA-Public Use
  Company Number: US-ELI_LILLY_AND_COMPANY-US201010003941

PATIENT
  Sex: Male

DRUGS (2)
  1. HUMULIN R [Suspect]
     Active Substance: INSULIN HUMAN
  2. HUMATROPE [Suspect]
     Active Substance: SOMATROPIN
     Dosage: 1 D/F, 6 OUT OF 7 DAYS

REACTIONS (1)
  - Drug dispensing error [Unknown]
